FAERS Safety Report 8303896-6 (Version None)
Quarter: 2012Q2

REPORT INFORMATION
  Report Type: 
  Country: None (occurrence: None)
  Receive Date: 20120423
  Receipt Date: 20120417
  Transmission Date: 20120825
  Serious: Yes (Other)
  Sender: FDA-Public Use
  Company Number: PHHY2012JP033449

PATIENT
  Age: 63 Year
  Sex: Female
  Weight: 41 kg

DRUGS (1)
  1. ZOMETA [Suspect]
     Indication: METASTASES TO BONE
     Dosage: 4 MG EVERY 4/3 WEEEKS
     Route: 041
     Dates: start: 20100101, end: 20120201

REACTIONS (4)
  - GINGIVAL SWELLING [None]
  - BONE FISTULA [None]
  - OSTEONECROSIS OF JAW [None]
  - GENERAL PHYSICAL CONDITION ABNORMAL [None]
